FAERS Safety Report 4384098-5 (Version None)
Quarter: 2004Q2

REPORT INFORMATION
  Report Type: 
  Country: None (occurrence: None)
  Receive Date: 20040621
  Receipt Date: 20040607
  Transmission Date: 20050107
  Serious: Yes (Hospitalization, Disabling)
  Sender: FDA-Public Use
  Company Number: S04-USA-00571-01

PATIENT
  Age: 77 Year
  Sex: Female

DRUGS (7)
  1. NAMENDA [Suspect]
     Indication: DEMENTIA ALZHEIMER'S TYPE
     Dosage: 5 MG, QD, PO
     Route: 048
     Dates: start: 20040125, end: 20040101
  2. NAMENDA [Suspect]
     Indication: DEMENTIA ALZHEIMER'S TYPE
     Dosage: 5 MG BID PO
     Route: 048
     Dates: start: 20040101, end: 20040205
  3. NAMENSDA (MEMANTINE) [Suspect]
     Indication: DEMENTIA ALZHEIMER'S TYPE
     Dosage: 5 MG QD PO
     Route: 048
     Dates: start: 20040219, end: 20040222
  4. CLONIDINE HCL [Suspect]
     Indication: HYPERTENSION
     Dates: end: 20040101
  5. CLONIDINE HCL [Suspect]
     Indication: HYPERTENSION
     Dates: start: 20040225
  6. ARICEPT (DONEPEZIL HYDOCHLORIDE) [Concomitant]
  7. SYNTHROID [Concomitant]

REACTIONS (11)
  - BLOOD PRESSURE INCREASED [None]
  - DIFFICULTY IN WALKING [None]
  - DYSURIA [None]
  - EATING DISORDER [None]
  - FATIGUE [None]
  - INCONTINENCE [None]
  - MOVEMENT DISORDER [None]
  - NASOPHARYNGITIS [None]
  - SLUGGISHNESS [None]
  - SOMNOLENCE [None]
  - SPEECH DISORDER [None]
